FAERS Safety Report 8759865 (Version 1)
Quarter: 2012Q4

REPORT INFORMATION
  Report Type: Report from Study
  Country: US (occurrence: US)
  Receive Date: 20120829
  Receipt Date: 20120829
  Transmission Date: 20130627
  Serious: Yes (Hospitalization)
  Sender: FDA-Public Use
  Company Number: US-ABBOTT-12P-163-0970662-00

PATIENT
  Age: 49 None
  Sex: Male
  Weight: 79.45 kg

DRUGS (9)
  1. NIASPAN (COATED) [Suspect]
     Indication: PRODUCT USED FOR UNKNOWN INDICATION
     Dosage: in the morning
     Dates: start: 20000801
  2. NIASPAN (COATED) [Suspect]
  3. NIASPAN (COATED) 500MG [Suspect]
     Indication: HIGH DENSITY LIPOPROTEIN DECREASED
     Dates: start: 20120803
  4. NIASPAN (COATED) 500MG [Suspect]
     Dosage: 1000 mg every night
     Dates: start: 201208, end: 20120820
  5. CRESTOR [Concomitant]
     Indication: PRODUCT USED FOR UNKNOWN INDICATION
  6. LISINOPRIL [Concomitant]
     Indication: PRODUCT USED FOR UNKNOWN INDICATION
  7. ASA [Concomitant]
     Indication: PRODUCT USED FOR UNKNOWN INDICATION
  8. MULTIVITAMIN [Concomitant]
     Indication: PRODUCT USED FOR UNKNOWN INDICATION
  9. FISH OIL [Concomitant]
     Indication: PRODUCT USED FOR UNKNOWN INDICATION

REACTIONS (8)
  - Cerebrovascular accident [Unknown]
  - Pyrexia [Not Recovered/Not Resolved]
  - Oropharyngeal pain [Not Recovered/Not Resolved]
  - Nasopharyngitis [Not Recovered/Not Resolved]
  - Malaise [Not Recovered/Not Resolved]
  - Drug dose omission [Recovered/Resolved]
  - Flushing [Not Recovered/Not Resolved]
  - Erythema [Not Recovered/Not Resolved]
